FAERS Safety Report 22338215 (Version 2)
Quarter: 2023Q2

REPORT INFORMATION
  Report Type: Other
  Country: US (occurrence: None)
  Receive Date: 20230518
  Receipt Date: 20230609
  Transmission Date: 20230722
  Serious: Yes (Other)
  Sender: FDA-Public Use
  Company Number: US-ROCHE-3351650

PATIENT
  Sex: Male

DRUGS (2)
  1. OCREVUS [Suspect]
     Active Substance: OCRELIZUMAB
     Indication: Product used for unknown indication
     Route: 065
  2. RITUXAN [Suspect]
     Active Substance: RITUXIMAB
     Indication: Multiple sclerosis
     Route: 065

REACTIONS (17)
  - Hypersensitivity [Unknown]
  - Anxiety [Unknown]
  - Neoplasm malignant [Unknown]
  - Asthma [Unknown]
  - Cataract [Unknown]
  - Chronic obstructive pulmonary disease [Unknown]
  - Depression [Unknown]
  - Diabetes mellitus [Unknown]
  - Glaucoma [Unknown]
  - Cardiac disorder [Unknown]
  - Hypertension [Unknown]
  - Blood cholesterol increased [Unknown]
  - Irritable bowel syndrome [Unknown]
  - Migraine [Unknown]
  - Rheumatoid arthritis [Unknown]
  - Off label use [Unknown]
  - Multiple sclerosis relapse [Unknown]

NARRATIVE: CASE EVENT DATE: 20211124
